FAERS Safety Report 13825268 (Version 1)
Quarter: 2017Q3

REPORT INFORMATION
  Report Type: Spontaneous
  Country: JP (occurrence: JP)
  Receive Date: 20170802
  Receipt Date: 20170802
  Transmission Date: 20171127
  Serious: Yes (Hospitalization)
  Sender: FDA-Public Use
  Company Number: JP-MYLANLABS-2017M1044565

PATIENT

DRUGS (6)
  1. TENELIGLIPTIN [Suspect]
     Active Substance: TENELIGLIPTIN
     Dosage: 20 MG, QD
  2. CLOPIDOGREL [Suspect]
     Active Substance: CLOPIDOGREL BISULFATE
     Indication: PERIPHERAL ARTERIAL OCCLUSIVE DISEASE
     Dosage: 75 MG, QD
     Route: 048
  3. TENELIGLIPTIN [Suspect]
     Active Substance: TENELIGLIPTIN
     Dosage: 20 MG, QD
  4. VOGLIBOSE [Suspect]
     Active Substance: VOGLIBOSE
     Indication: TYPE 2 DIABETES MELLITUS
     Dosage: 0.6 MG, QD
     Route: 048
  5. TENELIGLIPTIN [Suspect]
     Active Substance: TENELIGLIPTIN
     Indication: TYPE 2 DIABETES MELLITUS
     Dosage: 40 MG, QD
     Route: 048
  6. REPAGLINIDE. [Suspect]
     Active Substance: REPAGLINIDE
     Indication: TYPE 2 DIABETES MELLITUS
     Dosage: 1.5 MG, QD
     Route: 048

REACTIONS (2)
  - Hypoglycaemia [Recovered/Resolved]
  - Hypoglycaemic coma [Recovered/Resolved]
